FAERS Safety Report 5821632-X (Version None)
Quarter: 2008Q3

REPORT INFORMATION
  Report Type: 
  Country: None (occurrence: None)
  Receive Date: 20080714
  Receipt Date: 20070821
  Transmission Date: 20090109
  Serious: Yes (Other)
  Sender: FDA-Public Use
  Company Number: 512816

PATIENT
  Age: 73 Year
  Sex: Female

DRUGS (4)
  1. BONIVA [Suspect]
     Indication: BONE DISORDER
     Dosage: 150 MG ORAL
     Route: 048
     Dates: start: 20060601, end: 20070601
  2. ASCORBIC ACID [Concomitant]
  3. ASPIRIN [Concomitant]
  4. MULTIVITAMIN NOS (MULTIVITAMIN NOS) [Concomitant]

REACTIONS (4)
  - ABDOMINAL DISTENSION [None]
  - GASTROINTESTINAL ULCER [None]
  - HIATUS HERNIA [None]
  - INFREQUENT BOWEL MOVEMENTS [None]
